FAERS Safety Report 17031038 (Version 1)
Quarter: 2019Q4

REPORT INFORMATION
  Report Type: Report from Study
  Country: GB (occurrence: GB)
  Receive Date: 20191114
  Receipt Date: 20191114
  Transmission Date: 20200122
  Serious: Yes (Other)
  Sender: FDA-Public Use
  Company Number: PHHY2017GB137544

PATIENT
  Sex: Female

DRUGS (1)
  1. GILENYA [Suspect]
     Active Substance: FINGOLIMOD HYDROCHLORIDE
     Indication: MULTIPLE SCLEROSIS
     Dosage: 0.5 MG, QD
     Route: 048
     Dates: start: 20131108, end: 201511

REACTIONS (11)
  - Acquired claw toe [Recovered/Resolved]
  - Facial paralysis [Unknown]
  - Gait disturbance [Unknown]
  - Hepatitis B antigen positive [Unknown]
  - Menorrhagia [Unknown]
  - Anxiety [Unknown]
  - Back pain [Unknown]
  - Sensory disturbance [Unknown]
  - Muscle spasticity [Unknown]
  - Vitamin D decreased [Recovered/Resolved]
  - Fatigue [Unknown]
